FAERS Safety Report 20094075 (Version 2)
Quarter: 2022Q1

REPORT INFORMATION
  Report Type: Spontaneous
  Country: TR (occurrence: TR)
  Receive Date: 20211121
  Receipt Date: 20220103
  Transmission Date: 20220424
  Serious: Yes (Other)
  Sender: FDA-Public Use
  Company Number: TR-AMGEN-TURSP2021183141

PATIENT
  Age: 53 Year
  Sex: Male

DRUGS (6)
  1. FILGRASTIM [Suspect]
     Active Substance: FILGRASTIM
     Indication: Prophylaxis
     Dosage: 0.5 MICROGRAM/KILOGRAM
     Route: 058
  2. FLUDARABINE [Concomitant]
     Active Substance: FLUDARABINE PHOSPHATE
     Dosage: UNK
  3. CYTARABINE [Concomitant]
     Active Substance: CYTARABINE
     Dosage: UNK
  4. IDARUBICIN [Concomitant]
     Active Substance: IDARUBICIN
     Dosage: UNK
  5. AZACITIDINE [Concomitant]
     Active Substance: AZACITIDINE
     Dosage: UNK
  6. VENETOCLAX [Concomitant]
     Active Substance: VENETOCLAX
     Dosage: UNK

REACTIONS (1)
  - COVID-19 [Recovered/Resolved]
